FAERS Safety Report 17950432 (Version 1)
Quarter: 2020Q2

REPORT INFORMATION
  Report Type: Spontaneous
  Country: US (occurrence: US)
  Receive Date: 20200626
  Receipt Date: 20200626
  Transmission Date: 20200714
  Serious: Yes (Death, Other)
  Sender: FDA-Public Use
  Company Number: US-GILEAD-2020-0475638

PATIENT
  Age: 78 Year
  Sex: Male
  Weight: 85.8 kg

DRUGS (1)
  1. REMDESIVIR. [Suspect]
     Active Substance: REMDESIVIR
     Indication: COVID-19
     Dosage: UNK
     Route: 065
     Dates: start: 20200607, end: 20200616

REACTIONS (1)
  - Death [Fatal]

NARRATIVE: CASE EVENT DATE: 20200622
